FAERS Safety Report 5500843-7 (Version None)
Quarter: 2007Q4

REPORT INFORMATION
  Report Type: 
  Country: None (occurrence: None)
  Receive Date: 20071029
  Receipt Date: 20071022
  Transmission Date: 20080405
  Serious: Yes (Hospitalization)
  Sender: FDA-Public Use
  Company Number: B0492794A

PATIENT
  Age: 35 Year
  Sex: Female

DRUGS (9)
  1. FORTUM [Suspect]
     Dosage: 8G PER DAY
     Route: 042
     Dates: end: 20070417
  2. VFEND [Concomitant]
     Indication: BRONCHOPULMONARY ASPERGILLOSIS
     Route: 048
     Dates: start: 20070307, end: 20070413
  3. NEURONTIN [Concomitant]
     Indication: EPILEPSY
     Dosage: 300MG FIVE TIMES PER DAY
     Route: 065
     Dates: start: 20070115
  4. VOLTAREN [Concomitant]
     Route: 065
     Dates: end: 20070416
  5. KEPPRA [Concomitant]
     Indication: EPILEPSY
     Route: 065
     Dates: start: 20070101
  6. CIFLOX [Concomitant]
     Route: 065
     Dates: end: 20070416
  7. IMOVANE [Concomitant]
     Route: 065
     Dates: end: 20070416
  8. TERCIAN [Concomitant]
     Dates: end: 20070416
  9. SEVREDOL [Concomitant]
     Dates: end: 20070416

REACTIONS (23)
  - ALANINE AMINOTRANSFERASE ABNORMAL [None]
  - ASPARTATE AMINOTRANSFERASE ABNORMAL [None]
  - ASTERIXIS [None]
  - BLOOD ALKALINE PHOSPHATASE ABNORMAL [None]
  - BLOOD CREATININE ABNORMAL [None]
  - BLOOD UREA ABNORMAL [None]
  - CHOLESTASIS [None]
  - DYSKINESIA [None]
  - ENCEPHALOPATHY [None]
  - FORMICATION [None]
  - GAIT DISTURBANCE [None]
  - GAMMA-GLUTAMYLTRANSFERASE ABNORMAL [None]
  - HEPATOCELLULAR DAMAGE [None]
  - METABOLIC ACIDOSIS [None]
  - MIOSIS [None]
  - MOVEMENT DISORDER [None]
  - MYOCLONUS [None]
  - NEUROPATHY PERIPHERAL [None]
  - OVERDOSE [None]
  - PARAESTHESIA [None]
  - RENAL FAILURE ACUTE [None]
  - RESPIRATORY RATE DECREASED [None]
  - SOMNOLENCE [None]
